FAERS Safety Report 5328705-9 (Version None)
Quarter: 2007Q2

REPORT INFORMATION
  Report Type: 
  Country: None (occurrence: None)
  Receive Date: 20070518
  Receipt Date: 20070511
  Transmission Date: 20071010
  Serious: Yes (Other)
  Sender: FDA-Public Use
  Company Number: B0471411A

PATIENT
  Age: 69 Year
  Sex: Female

DRUGS (8)
  1. ROSIGLITAZONE [Suspect]
     Indication: DIABETES MELLITUS
     Route: 048
     Dates: start: 20070119, end: 20070216
  2. ACARBOSE [Concomitant]
  3. ASPIRIN [Concomitant]
     Route: 048
  4. ATENOLOL [Concomitant]
     Route: 048
     Dates: start: 20050101
  5. ATORVASTATIN CALCIUM [Concomitant]
  6. FUROSEMIDE [Concomitant]
  7. ISOSORBIDE MONONITRATE [Concomitant]
     Route: 048
     Dates: start: 20050101
  8. METFORMIN HCL [Concomitant]

REACTIONS (1)
  - DYSPNOEA [None]
